FAERS Safety Report 25000535 (Version 1)
Quarter: 2025Q1

REPORT INFORMATION
  Report Type: Report from Study
  Country: CA (occurrence: CA)
  Receive Date: 20250222
  Receipt Date: 20250222
  Transmission Date: 20250409
  Serious: Yes (Other)
  Sender: AMARIN
  Company Number: CA-Amarin Pharma  Inc-2025AMR000104

PATIENT
  Age: 85 Year
  Sex: Male

DRUGS (1)
  1. VASCEPA [Suspect]
     Active Substance: ICOSAPENT ETHYL
     Indication: Product used for unknown indication
     Dates: start: 20241108

REACTIONS (3)
  - Cerebrovascular accident [Unknown]
  - Burning sensation [Unknown]
  - Balance disorder [Unknown]

NARRATIVE: CASE EVENT DATE: 20250101
